FAERS Safety Report 21232572 (Version 2)
Quarter: 2022Q4

REPORT INFORMATION
  Report Type: Report from Study
  Country: US (occurrence: US)
  Receive Date: 20220819
  Receipt Date: 20221018
  Transmission Date: 20230113
  Serious: Yes (Hospitalization, Other)
  Sender: FDA-Public Use
  Company Number: US-TAKEDA-2022TUS031642

PATIENT
  Sex: Male

DRUGS (2)
  1. MARIBAVIR [Suspect]
     Active Substance: MARIBAVIR
     Indication: Renal transplant
     Dosage: 200 MILLIGRAM, BID
     Route: 048
     Dates: start: 20220423
  2. MARIBAVIR [Suspect]
     Active Substance: MARIBAVIR
     Indication: Cytomegalovirus infection
     Dosage: 2 DOSAGE FORM, BID
     Route: 048
     Dates: start: 20220423

REACTIONS (8)
  - Kidney infection [Unknown]
  - Thrombosis [Unknown]
  - Cytomegalovirus infection [Unknown]
  - Lethargy [Unknown]
  - Gastric disorder [Unknown]
  - Taste disorder [Unknown]
  - Off label use [Unknown]
  - Product dose omission issue [Unknown]
